FAERS Safety Report 7543900-6 (Version None)
Quarter: 2011Q2

REPORT INFORMATION
  Report Type: 
  Country: None (occurrence: None)
  Receive Date: 20110613
  Receipt Date: 20110601
  Transmission Date: 20111010
  Serious: Yes (Hospitalization, Other)
  Sender: FDA-Public Use
  Company Number: JP-CELGENEUS-087-21880-11060008

PATIENT
  Sex: Female

DRUGS (13)
  1. REVLIMID [Suspect]
     Indication: MULTIPLE MYELOMA
     Dosage: 25 MILLIGRAM
     Route: 048
     Dates: start: 20110428, end: 20110510
  2. ETODOLAC [Concomitant]
     Indication: RHEUMATOID ARTHRITIS
     Dosage: 2 TABLET
     Route: 048
     Dates: start: 20110428, end: 20110510
  3. ISONIAZID [Concomitant]
     Indication: PROPHYLAXIS
     Dosage: 1 TABLET
     Route: 048
     Dates: start: 20110428, end: 20110525
  4. REVLIMID [Suspect]
     Dosage: 15 MILLIGRAM
     Route: 048
     Dates: start: 20110511, end: 20110518
  5. LAC-B [Concomitant]
     Indication: PROPHYLAXIS
     Dosage: 3 PACKS
     Route: 048
     Dates: start: 20110428, end: 20110525
  6. CLARITHROMYCIN [Concomitant]
     Indication: PROPHYLAXIS
     Dosage: 4 TABLET
     Route: 048
     Dates: start: 20110428, end: 20110525
  7. AMLODIPINE [Concomitant]
     Indication: HYPERTENSION
     Dosage: 1 TABLET
     Route: 048
     Dates: start: 20110428, end: 20110510
  8. SULFAMETHOXAZOLE [Concomitant]
     Indication: PROPHYLAXIS
     Dosage: 1 TABLET
     Route: 048
     Dates: start: 20110428, end: 20110525
  9. OMEPRAZOLE [Concomitant]
     Indication: PROPHYLAXIS
     Dosage: 1 TABLET
     Route: 048
     Dates: start: 20110428, end: 20110525
  10. FLUCONAZOLE [Concomitant]
     Indication: PROPHYLAXIS
     Dosage: 1 CAPSULE
     Route: 048
     Dates: start: 20110428, end: 20110525
  11. DEXAMETHASONE [Suspect]
     Indication: MULTIPLE MYELOMA
     Dosage: 40 MILLIGRAM
     Route: 048
     Dates: start: 20110428, end: 20110511
  12. LIVALO [Concomitant]
     Dosage: .5 TABLET
     Route: 048
     Dates: start: 20110428, end: 20110510
  13. OXYCONTIN [Concomitant]
     Dosage: 4 TABLET
     Route: 048
     Dates: start: 20110428, end: 20110525

REACTIONS (3)
  - INFECTION [None]
  - DEPRESSION [None]
  - NEUROGENIC BLADDER [None]
